FAERS Safety Report 6239879-X (Version None)
Quarter: 2009Q2

REPORT INFORMATION
  Report Type: 
  Country: None (occurrence: None)
  Receive Date: 20090618
  Receipt Date: 20090618
  Transmission Date: 20091009
  Serious: No
  Sender: FDA-Public Use
  Company Number: None

PATIENT
  Age: 61 Year
  Sex: Female
  Weight: 58.514 kg

DRUGS (1)
  1. ZICAM [Suspect]
     Dosage: ONE SPRAY TWICE A DAY  (DURATION: A FEW DAYS)

REACTIONS (2)
  - ANOSMIA [None]
  - NASAL ULCER [None]
